FAERS Safety Report 17864412 (Version 1)
Quarter: 2020Q2

REPORT INFORMATION
  Report Type: Spontaneous
  Country: US (occurrence: US)
  Receive Date: 20200605
  Receipt Date: 20200605
  Transmission Date: 20200714
  Serious: No
  Sender: FDA-Public Use
  Company Number: US-TEVA-2020-US-1245054

PATIENT
  Sex: Female

DRUGS (11)
  1. AMPYRA [Concomitant]
     Active Substance: DALFAMPRIDINE
  2. GLIMEPIRIDE. [Concomitant]
     Active Substance: GLIMEPIRIDE
  3. LISINOPRIL. [Concomitant]
     Active Substance: LISINOPRIL
  4. SYNJARDY [Concomitant]
     Active Substance: EMPAGLIFLOZIN\METFORMIN HYDROCHLORIDE
  5. COPAXONE [Suspect]
     Active Substance: GLATIRAMER ACETATE
     Indication: MULTIPLE SCLEROSIS
     Route: 058
     Dates: start: 20160330
  6. ASPIRIN. [Concomitant]
     Active Substance: ASPIRIN
  7. LEXAPRO [Concomitant]
     Active Substance: ESCITALOPRAM OXALATE
  8. OMEPRAZOLE. [Concomitant]
     Active Substance: OMEPRAZOLE
  9. LEVOTHYROXONE [Concomitant]
  10. ATORVASTATIN [Concomitant]
     Active Substance: ATORVASTATIN
  11. BUPROPN [Concomitant]

REACTIONS (10)
  - Feeling abnormal [Not Recovered/Not Resolved]
  - Depressed mood [Not Recovered/Not Resolved]
  - Pain in extremity [Not Recovered/Not Resolved]
  - Musculoskeletal stiffness [Not Recovered/Not Resolved]
  - Arthralgia [Not Recovered/Not Resolved]
  - Depression [Not Recovered/Not Resolved]
  - Impaired work ability [Not Recovered/Not Resolved]
  - Decreased interest [Not Recovered/Not Resolved]
  - Fatigue [Not Recovered/Not Resolved]
  - Joint stiffness [Not Recovered/Not Resolved]
